FAERS Safety Report 5581319-8 (Version None)
Quarter: 2008Q1

REPORT INFORMATION
  Report Type: 
  Country: None (occurrence: None)
  Receive Date: 20080104
  Receipt Date: 20071228
  Transmission Date: 20080703
  Serious: Yes (Death, Hospitalization)
  Sender: FDA-Public Use
  Company Number: PHHO2007IT18990

PATIENT
  Age: 57 Year
  Sex: Female

DRUGS (9)
  1. AMN107 [Suspect]
     Indication: CHRONIC MYELOID LEUKAEMIA
     Dosage: 800MG
     Route: 048
     Dates: start: 20051116, end: 20071105
  2. DELTA-CORTEF [Concomitant]
  3. PANTOPRAZOLE SODIUM [Concomitant]
  4. TACHIDOL [Concomitant]
  5. DELTACORTENE [Concomitant]
  6. NATECAL D [Concomitant]
  7. DICLOFENAC SODIUM [Concomitant]
  8. CETIRIZINE HCL [Concomitant]
  9. BROMAZEPAM [Concomitant]

REACTIONS (16)
  - ABDOMINAL PAIN [None]
  - ABDOMINAL PAIN UPPER [None]
  - ACUTE MYOCARDIAL INFARCTION [None]
  - AORTIC DISSECTION [None]
  - BLOOD GLUCOSE INCREASED [None]
  - CARDIAC ARREST [None]
  - CARDIOGENIC SHOCK [None]
  - CHEST PAIN [None]
  - CYANOSIS [None]
  - DYSPNOEA AT REST [None]
  - ELECTROCARDIOGRAM ST SEGMENT ELEVATION [None]
  - HYPOTENSION [None]
  - NECK PAIN [None]
  - PAIN IN EXTREMITY [None]
  - PAIN IN JAW [None]
  - VOMITING [None]
